FAERS Safety Report 12483571 (Version 3)
Quarter: 2016Q3

REPORT INFORMATION
  Report Type: Spontaneous
  Country: PL (occurrence: PL)
  Receive Date: 20160621
  Receipt Date: 20160721
  Transmission Date: 20161109
  Serious: Yes (Other)
  Sender: FDA-Public Use
  Company Number: PL-ROCHE-1778330

PATIENT
  Age: 45 Year
  Sex: Female

DRUGS (6)
  1. COPEGUS [Suspect]
     Active Substance: RIBAVIRIN
     Indication: HEPATITIS C
     Dosage: 600-0-600 MG
     Route: 065
     Dates: start: 20130411, end: 201310
  2. COPEGUS [Suspect]
     Active Substance: RIBAVIRIN
     Dosage: 600-0-600 MG
     Route: 065
     Dates: start: 20150213
  3. ALFAFERONE [Suspect]
     Active Substance: INTERFERON ALFA-N3
     Route: 058
     Dates: start: 201307, end: 201401
  4. PEGASYS [Suspect]
     Active Substance: PEGINTERFERON ALFA-2A
     Indication: HEPATITIS C
     Dosage: 180 MCG TO 135 MCG PER WEEK
     Route: 058
     Dates: start: 20150213
  5. ALFAFERONE [Suspect]
     Active Substance: INTERFERON ALFA-N3
     Indication: HEPATITIS C
     Route: 058
     Dates: start: 20130411, end: 201310
  6. SOVALDI [Suspect]
     Active Substance: SOFOSBUVIR
     Indication: HEPATITIS C
     Dosage: 1 X 1 FOR 12 WEEKS
     Route: 065
     Dates: start: 20150213

REACTIONS (18)
  - Leukopenia [Recovering/Resolving]
  - Headache [Unknown]
  - Ascites [Unknown]
  - Portal hypertension [Unknown]
  - Varices oesophageal [Unknown]
  - Drug ineffective [Unknown]
  - Neutropenia [Unknown]
  - Thrombocytopenia [Recovering/Resolving]
  - Aspartate aminotransferase increased [Recovering/Resolving]
  - Alanine aminotransferase increased [Unknown]
  - Fatigue [Unknown]
  - Anaemia [Unknown]
  - Blood bilirubin increased [Unknown]
  - Hepatic cirrhosis [Unknown]
  - International normalised ratio increased [Unknown]
  - Pain in extremity [Unknown]
  - Blood albumin decreased [Not Recovered/Not Resolved]
  - Haemoglobin decreased [Recovered/Resolved]
